FAERS Safety Report 4927792-7 (Version None)
Quarter: 2006Q1

REPORT INFORMATION
  Report Type: 
  Country: None (occurrence: None)
  Receive Date: 20060228
  Receipt Date: 20051104
  Transmission Date: 20060701
  Serious: No
  Sender: FDA-Public Use
  Company Number: US05/010079

PATIENT
  Sex: Male

DRUGS (1)
  1. ALKERAN [Suspect]
     Indication: AMYLOIDOSIS
     Route: 065

REACTIONS (1)
  - PLATELET COUNT DECREASED [None]
